FAERS Safety Report 24728483 (Version 1)
Quarter: 2024Q4

REPORT INFORMATION
  Report Type: Spontaneous
  Country: CN (occurrence: CN)
  Receive Date: 20241212
  Receipt Date: 20241212
  Transmission Date: 20250115
  Serious: Yes (Other)
  Sender: NOVARTIS
  Company Number: CN-002147023-NVSC2024CN231359

PATIENT
  Age: 84 Year
  Sex: Male
  Weight: 54 kg

DRUGS (2)
  1. SACUBITRIL\VALSARTAN [Suspect]
     Active Substance: SACUBITRIL\VALSARTAN
     Indication: Cardiac valve disease
     Dosage: 25.000 MG, BID
     Route: 048
     Dates: start: 20241123, end: 20241126
  2. SACUBITRIL\VALSARTAN [Suspect]
     Active Substance: SACUBITRIL\VALSARTAN
     Indication: Cardiac dysfunction

REACTIONS (9)
  - Hypotension [Recovering/Resolving]
  - Syncope [Unknown]
  - Dizziness [Recovered/Resolved]
  - Arrhythmia [Unknown]
  - Breath sounds abnormal [Unknown]
  - Cardiomegaly [Unknown]
  - Heart rate decreased [Unknown]
  - Heart sounds abnormal [Unknown]
  - Cardiac murmur [Unknown]

NARRATIVE: CASE EVENT DATE: 20241124
